FAERS Safety Report 11930550 (Version 1)
Quarter: 2016Q1

REPORT INFORMATION
  Report Type: Spontaneous
  Country: US (occurrence: None)
  Receive Date: 20160119
  Receipt Date: 20160119
  Transmission Date: 20160526
  Serious: Yes (Life-Threatening, Hospitalization, Disabling)
  Sender: FDA-Public Use
  Company Number: None

PATIENT
  Age: 61 Year
  Sex: Female
  Weight: 54.43 kg

DRUGS (2)
  1. GLUCAGON. [Concomitant]
     Active Substance: GLUCAGON
  2. ABLAVAR [Suspect]
     Active Substance: GADOFOSVESET TRISODIUM
     Indication: NUCLEAR MAGNETIC RESONANCE IMAGING
     Route: 042
     Dates: start: 20151130

REACTIONS (3)
  - Adverse drug reaction [None]
  - Incorrect dose administered [None]
  - Contrast media reaction [None]

NARRATIVE: CASE EVENT DATE: 20151130
